FAERS Safety Report 10138835 (Version 3)
Quarter: 2014Q2

REPORT INFORMATION
  Report Type: Spontaneous
  Country: JP (occurrence: JP)
  Receive Date: 20140429
  Receipt Date: 20140616
  Transmission Date: 20141212
  Serious: Yes (Other)
  Sender: FDA-Public Use
  Company Number: PHHY2014JP048576

PATIENT
  Sex: 0

DRUGS (1)
  1. VOLTAREN [Suspect]
     Indication: RHEUMATIC DISORDER
     Dosage: UNK UKN, UNK
     Route: 048

REACTIONS (3)
  - Fall [Unknown]
  - Fracture [Unknown]
  - Swelling [Unknown]
